FAERS Safety Report 4689950-9 (Version None)
Quarter: 2005Q2

REPORT INFORMATION
  Report Type: 
  Country: None (occurrence: None)
  Receive Date: 20050608
  Receipt Date: 20050422
  Transmission Date: 20051028
  Serious: No
  Sender: FDA-Public Use
  Company Number: 2005-BP-06682BP

PATIENT
  Age: 80 Year
  Sex: Male

DRUGS (10)
  1. SPIRIVA [Suspect]
     Indication: CHRONIC OBSTRUCTIVE PULMONARY DISEASE
     Dosage: 18 MCG (18 MCG, QD) IH
     Route: 055
     Dates: start: 20040601, end: 20050420
  2. FLOMAX [Concomitant]
  3. ATENOLOL [Concomitant]
  4. LIPITOR [Concomitant]
  5. AGGRENOX [Concomitant]
  6. PREVACID [Concomitant]
  7. VIAGRA [Concomitant]
  8. CENTRUM MULTIVITAMIN (MULTIVITAMINS) [Concomitant]
  9. CALCIUM (CALCIUM) [Concomitant]
  10. SPECTRUCEF [Concomitant]

REACTIONS (1)
  - URINARY RETENTION [None]
